FAERS Safety Report 23786045 (Version 1)
Quarter: 2024Q2

REPORT INFORMATION
  Report Type: Spontaneous
  Country: US (occurrence: US)
  Receive Date: 20240426
  Receipt Date: 20240426
  Transmission Date: 20240716
  Serious: No
  Sender: FDA-Public Use
  Company Number: US-SA-SAC20240424000059

PATIENT
  Age: 1 Year
  Sex: Female

DRUGS (2)
  1. DUPIXENT [Suspect]
     Active Substance: DUPILUMAB
     Indication: Dermatitis atopic
     Dosage: 200 MG, Q4W
     Route: 058
     Dates: start: 20240103
  2. DERMA SMOOTH FS [Concomitant]

REACTIONS (4)
  - Facial discomfort [Unknown]
  - Therapeutic response shortened [Unknown]
  - Oral discomfort [Unknown]
  - Skin irritation [Unknown]

NARRATIVE: CASE EVENT DATE: 20240101
